FAERS Safety Report 6179077-1 (Version None)
Quarter: 2009Q2

REPORT INFORMATION
  Report Type: 
  Country: None (occurrence: None)
  Receive Date: 20090505
  Receipt Date: 20090428
  Transmission Date: 20091009
  Serious: Yes (Death)
  Sender: FDA-Public Use
  Company Number: TW-ASTRAZENECA-2009AP02792

PATIENT
  Age: 84 Year
  Sex: Female

DRUGS (16)
  1. SEROQUEL [Suspect]
     Indication: DELIRIUM
     Route: 048
     Dates: start: 20090310
  2. SEROQUEL [Suspect]
     Route: 048
     Dates: start: 20090317
  3. SEROQUEL [Suspect]
     Route: 048
     Dates: start: 20090415
  4. DAMPURINE [Concomitant]
  5. BISOPROLOL FUMARATE [Concomitant]
  6. NORVASC [Concomitant]
  7. CO-DIVAN [Concomitant]
     Dosage: 80/12.5
  8. LIPITOR [Concomitant]
  9. DILANTIN [Concomitant]
  10. BISADYL [Concomitant]
  11. THROUGH [Concomitant]
  12. FERROUS GLUCO B [Concomitant]
  13. GLUCOBAY [Concomitant]
  14. ASPIRIN [Concomitant]
  15. LAFUZO [Concomitant]
  16. NOVONORM [Concomitant]

REACTIONS (1)
  - CARDIAC ARREST [None]
